FAERS Safety Report 24787520 (Version 1)
Quarter: 2024Q4

REPORT INFORMATION
  Report Type: Spontaneous
  Country: US (occurrence: US)
  Receive Date: 20241230
  Receipt Date: 20241230
  Transmission Date: 20250114
  Serious: No
  Sender: ELI LILLY AND COMPANY
  Company Number: US-ELI_LILLY_AND_COMPANY-US202412018100

PATIENT
  Age: 78 Year
  Sex: Female

DRUGS (1)
  1. TIRZEPATIDE [Suspect]
     Active Substance: TIRZEPATIDE
     Indication: Weight control
     Dosage: UNK UNK, DAILY (2 DROPS A DAY WITH A DROPPER)
     Route: 048

REACTIONS (3)
  - Counterfeit product administered [Unknown]
  - Nausea [Unknown]
  - Hypersensitivity [Unknown]
